FAERS Safety Report 12621606 (Version 3)
Quarter: 2016Q4

REPORT INFORMATION
  Report Type: Spontaneous
  Country: IT (occurrence: IT)
  Receive Date: 20160804
  Receipt Date: 20161024
  Transmission Date: 20170207
  Serious: Yes (Death, Hospitalization)
  Sender: FDA-Public Use
  Company Number: IT-ROCHE-1808643

PATIENT
  Age: 65 Year
  Sex: Female
  Weight: 66 kg

DRUGS (2)
  1. TAXOL [Suspect]
     Active Substance: PACLITAXEL
     Indication: BREAST NEOPLASM
     Route: 065
     Dates: start: 201507
  2. AVASTIN [Suspect]
     Active Substance: BEVACIZUMAB
     Indication: BREAST NEOPLASM
     Dosage: DATE OF LAST DOSE PRIOR TO EVENT - 03/NOV/2015
     Route: 042
     Dates: start: 20150728

REACTIONS (7)
  - Asthenia [Fatal]
  - Anaemia [Fatal]
  - Vomiting [Fatal]
  - Malaise [Fatal]
  - Melaena [Fatal]
  - Diarrhoea [Fatal]
  - Haematemesis [Fatal]

NARRATIVE: CASE EVENT DATE: 20151111
